FAERS Safety Report 11647578 (Version 1)
Quarter: 2015Q4

REPORT INFORMATION
  Report Type: Spontaneous
  Country: IT (occurrence: IT)
  Receive Date: 20151021
  Receipt Date: 20151021
  Transmission Date: 20160304
  Serious: Yes (Hospitalization)
  Sender: FDA-Public Use
  Company Number: IT-AUROBINDO-AUR-APL-2015-09294

PATIENT
  Age: 71 Year
  Sex: Male

DRUGS (4)
  1. PANTOPRAZOLE [Suspect]
     Active Substance: PANTOPRAZOLE SODIUM
     Indication: RHEUMATOID ARTHRITIS
     Dosage: 20 MG, DAILY
     Route: 065
     Dates: start: 201308
  2. PREDNISONE. [Suspect]
     Active Substance: PREDNISONE
     Indication: RHEUMATOID ARTHRITIS
     Dosage: 5 MG, DAILY
     Route: 065
     Dates: start: 201308
  3. METHOTREXATE [Concomitant]
     Active Substance: METHOTREXATE
     Indication: PRODUCT USED FOR UNKNOWN INDICATION
     Route: 065
  4. TOCILIZUMAB [Suspect]
     Active Substance: TOCILIZUMAB
     Indication: RHEUMATOID ARTHRITIS
     Dosage: 650 MG, ONCE A MONTH
     Route: 042
     Dates: start: 201308

REACTIONS (16)
  - Musculoskeletal stiffness [Recovering/Resolving]
  - Malaise [Recovering/Resolving]
  - Coma [Recovering/Resolving]
  - Disorientation [Recovering/Resolving]
  - Respiratory failure [Recovering/Resolving]
  - Listeria encephalitis [Recovering/Resolving]
  - Pyrexia [Recovering/Resolving]
  - Headache [Recovering/Resolving]
  - Encephalitis [Recovering/Resolving]
  - CSF protein increased [Recovering/Resolving]
  - Reflexes abnormal [Recovering/Resolving]
  - Hemiparesis [Recovering/Resolving]
  - Confusional state [Recovering/Resolving]
  - Miosis [Recovering/Resolving]
  - Condition aggravated [Recovering/Resolving]
  - CSF glucose abnormal [Recovering/Resolving]
